FAERS Safety Report 4681082-9 (Version None)
Quarter: 2005Q2

REPORT INFORMATION
  Report Type: 
  Country: None (occurrence: None)
  Receive Date: 20050603
  Receipt Date: 20050525
  Transmission Date: 20051028
  Serious: Yes (Death, Other)
  Sender: FDA-Public Use
  Company Number: GB-GLAXOSMITHKLINE-B0382328A

PATIENT
  Age: 12 Year
  Sex: Female

DRUGS (3)
  1. LAMOTRIGINE [Suspect]
     Indication: EPILEPSY
     Dosage: 300MG PER DAY
     Route: 048
     Dates: start: 20010801
  2. MIDAZOLAM [Suspect]
     Indication: EPILEPSY
     Dosage: 10MG SINGLE DOSE
     Route: 060
     Dates: start: 20050206
  3. TOPIRAMATE [Suspect]
     Indication: EPILEPSY
     Dosage: 25MG TWICE PER DAY
     Route: 048
     Dates: start: 20050131

REACTIONS (1)
  - SUDDEN DEATH [None]
